APPROVED DRUG PRODUCT: HYDROCORTISONE
Active Ingredient: HYDROCORTISONE
Strength: 10MG
Dosage Form/Route: TABLET;ORAL
Application: A207029 | Product #002 | TE Code: AB
Applicant: STRIDES PHARMA GLOBAL PTE LTD
Approved: Apr 27, 2017 | RLD: No | RS: No | Type: RX